FAERS Safety Report 6826511-7 (Version None)
Quarter: 2010Q3

REPORT INFORMATION
  Report Type: 
  Country: None (occurrence: None)
  Receive Date: 20100709
  Receipt Date: 20100630
  Transmission Date: 20110219
  Serious: Yes (Other)
  Sender: FDA-Public Use
  Company Number: DE-AMGEN-QUU421948

PATIENT
  Sex: Female

DRUGS (3)
  1. NEULASTA [Suspect]
     Indication: CHEMOTHERAPY
     Route: 058
     Dates: start: 20100616, end: 20100616
  2. EPIRUBICIN [Suspect]
     Route: 042
     Dates: start: 20100615, end: 20100615
  3. CYCLOPHOSPHAMIDE [Suspect]
     Route: 042
     Dates: start: 20100615, end: 20100615

REACTIONS (2)
  - LEUKOPENIA [None]
  - NEUTROPENIA [None]
